FAERS Safety Report 19008014 (Version 1)
Quarter: 2021Q1

REPORT INFORMATION
  Report Type: Spontaneous
  Country: US (occurrence: US)
  Receive Date: 20210315
  Receipt Date: 20210315
  Transmission Date: 20210420
  Serious: No
  Sender: FDA-Public Use
  Company Number: US-BAYER-2021-102547

PATIENT

DRUGS (6)
  1. CREON [Concomitant]
     Active Substance: PANCRELIPASE AMYLASE\PANCRELIPASE LIPASE\PANCRELIPASE PROTEASE
  2. BENEFIBER [Concomitant]
     Active Substance: STARCH, WHEAT
  3. COENZYME Q10 [Concomitant]
     Active Substance: DIETARY SUPPLEMENT\UBIDECARENONE
  4. CHELATED MAGNESIUM [MAGNESIUM CHELATE] [Concomitant]
  5. CBD OIL [Concomitant]
     Active Substance: CANNABIDIOL\HERBALS
  6. MIRALAX [Suspect]
     Active Substance: POLYETHYLENE GLYCOL 3350

REACTIONS (1)
  - Wrong technique in product usage process [Unknown]
